FAERS Safety Report 23162760 (Version 4)
Quarter: 2023Q4

REPORT INFORMATION
  Report Type: Report from Study
  Country: US (occurrence: US)
  Receive Date: 20231109
  Receipt Date: 20231211
  Transmission Date: 20240110
  Serious: Yes (Hospitalization)
  Sender: FDA-Public Use
  Company Number: US-ABBVIE-5486410

PATIENT
  Sex: Male

DRUGS (12)
  1. VENCLEXTA [Suspect]
     Active Substance: VENETOCLAX
     Indication: Acute myeloid leukaemia
     Dosage: STRENGTH: 100 MG?ONCE DAILY AS DIRECTED BY ONCOLOGIST? TOOK IT FOR A 21 DAY CYCLE, 3 WEEK DOSING ...
     Route: 048
     Dates: start: 2023, end: 2023
  2. VENCLEXTA [Suspect]
     Active Substance: VENETOCLAX
     Indication: Acute myeloid leukaemia
     Dosage: STRENGTH: 10 MG?LAST ADMIN DATE-2023
     Route: 048
     Dates: start: 202310
  3. XOSPATA [Concomitant]
     Active Substance: GILTERITINIB
     Indication: Product used for unknown indication
  4. POSACONAZOLE [Concomitant]
     Active Substance: POSACONAZOLE
     Indication: Product used for unknown indication
  5. AZACITIDINE [Concomitant]
     Active Substance: AZACITIDINE
     Indication: Product used for unknown indication
  6. ZOVIRAX [Concomitant]
     Active Substance: ACYCLOVIR
     Indication: Product used for unknown indication
     Dosage: STRENGTH: 800 MG?TAKE 0.5 TABLETS (400 MG TOTAL) BY MOUTH 2 (TWO) TIMES DAILY
     Route: 048
  7. DIFLUCAN [Concomitant]
     Active Substance: FLUCONAZOLE
     Indication: Product used for unknown indication
     Dosage: STRENGTH: 200 MG?200 MG TABLET TAKE 1 TABLET (200 MG TOTAL) BY MOUTH DAILY. - ORAL
     Route: 048
     Dates: start: 20230906
  8. LEVAQUIN [Concomitant]
     Active Substance: LEVOFLOXACIN
     Indication: Product used for unknown indication
     Dosage: TIME INTERVAL: TOTAL: STRENGTH: 500 MG
     Route: 048
     Dates: start: 20231020
  9. ZYPREXA [Concomitant]
     Active Substance: OLANZAPINE
     Indication: Product used for unknown indication
     Dosage: STRENGTH: 5 MG?TAKE 1 TABLET (5 MG TOTAL) BY MOUTH NIGHTLY AS NEEDED
     Route: 048
     Dates: start: 20231020
  10. ROXICODONE [Concomitant]
     Active Substance: OXYCODONE HYDROCHLORIDE
     Indication: Pain
     Dosage: TAKE 1 TABLET (5 MG TOTAL) BY MOUTH EVERY 4 (FOUR) HOURS AS NEEDED FOR PAIN. REASONS:  CANCER OR ...
     Route: 048
     Dates: start: 20231101
  11. SENOKOT [Concomitant]
     Active Substance: SENNOSIDES
     Indication: Product used for unknown indication
     Route: 048
  12. LIPITOR [Concomitant]
     Active Substance: ATORVASTATIN CALCIUM
     Indication: Product used for unknown indication
     Dosage: TAKE 1 TABLET (40 MG TOTAL) BY MOUTH DAILY.
     Route: 048
     Dates: start: 20230906

REACTIONS (5)
  - Leukocytosis [Unknown]
  - Anaemia [Unknown]
  - Thrombocytopenia [Unknown]
  - Off label use [Unknown]
  - Illness [Not Recovered/Not Resolved]

NARRATIVE: CASE EVENT DATE: 20230101
